FAERS Safety Report 10343367 (Version 2)
Quarter: 2014Q3

REPORT INFORMATION
  Report Type: Spontaneous
  Country: US (occurrence: US)
  Receive Date: 20140725
  Receipt Date: 20140808
  Transmission Date: 20150326
  Serious: Yes (Death)
  Sender: FDA-Public Use
  Company Number: US-DENDREON CORPORATION-2014PROUSA03904

PATIENT
  Age: 87 Year
  Sex: Male

DRUGS (3)
  1. PROVENGE [Suspect]
     Active Substance: SIPULEUCEL-T
     Indication: PROSTATE CANCER METASTATIC
     Dosage: 250 ML, SINGLE
     Route: 042
     Dates: start: 20140620, end: 20140620
  2. LUTEINIZING HORMONE-RELEASING HORMONE [Concomitant]
     Active Substance: LUTEINIZING HORMONE
     Indication: PROSTATE CANCER
     Dosage: UNK
  3. PROVENGE [Suspect]
     Active Substance: SIPULEUCEL-T
     Dosage: 250 ML, SINGLE
     Route: 042
     Dates: start: 20140711, end: 20140711

REACTIONS (1)
  - Cardiac arrest [Fatal]

NARRATIVE: CASE EVENT DATE: 20140721
